FAERS Safety Report 11990990 (Version 3)
Quarter: 2018Q1

REPORT INFORMATION
  Report Type: Spontaneous
  Country: US (occurrence: US)
  Receive Date: 20160202
  Receipt Date: 20180327
  Transmission Date: 20180508
  Serious: No
  Sender: FDA-Public Use
  Company Number: US-ASTRAZENECA-2016SE10187

PATIENT
  Age: 6 Year
  Sex: Female
  Weight: 44 kg

DRUGS (4)
  1. NEXIUM [Suspect]
     Active Substance: ESOMEPRAZOLE MAGNESIUM
     Indication: GASTROOESOPHAGEAL REFLUX DISEASE
     Route: 048
  2. TUDORZA PRESSAIR [Suspect]
     Active Substance: ACLIDINIUM BROMIDE
     Indication: CHRONIC OBSTRUCTIVE PULMONARY DISEASE
     Route: 055
     Dates: start: 2014
  3. NEXIUM 24HR [Suspect]
     Active Substance: ESOMEPRAZOLE MAGNESIUM
     Indication: GASTROOESOPHAGEAL REFLUX DISEASE
     Route: 048
  4. CORTICOSTEROID NOS [Concomitant]
     Active Substance: CORTICOSTEROID NOS
     Indication: PAIN

REACTIONS (13)
  - Visual impairment [Unknown]
  - Therapeutic response unexpected [Unknown]
  - Diarrhoea [Recovered/Resolved]
  - Off label use [Unknown]
  - Eructation [Unknown]
  - Intentional product misuse [Not Recovered/Not Resolved]
  - Pre-existing condition improved [Unknown]
  - Device malfunction [Unknown]
  - Muscle spasms [Not Recovered/Not Resolved]
  - Aphonia [Recovering/Resolving]
  - Product use in unapproved indication [Unknown]
  - Frequent bowel movements [Not Recovered/Not Resolved]
  - Intentional product misuse [Unknown]

NARRATIVE: CASE EVENT DATE: 2014
